FAERS Safety Report 9108239 (Version 1)
Quarter: 2013Q1

REPORT INFORMATION
  Report Type: Spontaneous
  Country: GB (occurrence: GB)
  Receive Date: 20130222
  Receipt Date: 20130222
  Transmission Date: 20140127
  Serious: Yes (Other)
  Sender: FDA-Public Use
  Company Number: GB-ELI_LILLY_AND_COMPANY-GB201302004516

PATIENT
  Age: 48 Year
  Sex: Female
  Weight: 109 kg

DRUGS (7)
  1. BYDUREON [Suspect]
     Dosage: 2 MG, UNK
     Route: 058
     Dates: start: 20130115, end: 20130130
  2. ATORVASTATIN [Concomitant]
  3. FLUOXETINE HYDROCHLORIDE [Concomitant]
  4. LEVOTHYROXINE [Concomitant]
  5. METFORMIN HYDROCHLORIDE [Concomitant]
  6. SITAGLIPTIN [Concomitant]
  7. TELMISARTAN [Concomitant]

REACTIONS (8)
  - Anxiety [Not Recovered/Not Resolved]
  - Discomfort [Not Recovered/Not Resolved]
  - Rash erythematous [Not Recovered/Not Resolved]
  - Eye pain [Not Recovered/Not Resolved]
  - Pruritus generalised [Not Recovered/Not Resolved]
  - Eye pruritus [Not Recovered/Not Resolved]
  - Dermatitis [Not Recovered/Not Resolved]
  - Skin reaction [Not Recovered/Not Resolved]
